FAERS Safety Report 4512930-0 (Version None)
Quarter: 2004Q4

REPORT INFORMATION
  Report Type: 
  Country: None (occurrence: None)
  Receive Date: 20041119
  Receipt Date: 20041119
  Transmission Date: 20050328
  Serious: Yes (Life-Threatening)
  Sender: FDA-Public Use
  Company Number: None

PATIENT
  Age: 70 Year
  Sex: Male
  Weight: 79 kg

DRUGS (5)
  1. DOCETAXEL [Suspect]
     Indication: NON-SMALL CELL LUNG CANCER
     Dosage: 146 MG EVERY 21 DAYS INTRAVENOU
     Route: 042
     Dates: start: 20041025, end: 20041116
  2. IRESSA [Suspect]
     Dosage: 250 MG EVERY DAY ORAL
     Route: 048
     Dates: start: 20041025, end: 20041116
  3. LIPITOR [Concomitant]
  4. MOEXIPRIL HCL [Concomitant]
  5. DEXAMETHISONE [Concomitant]

REACTIONS (5)
  - CEREBROVASCULAR ACCIDENT [None]
  - FALL [None]
  - SENSORY LOSS [None]
  - SPEECH DISORDER [None]
  - TRANSIENT ISCHAEMIC ATTACK [None]
